FAERS Safety Report 19688584 (Version 8)
Quarter: 2022Q4

REPORT INFORMATION
  Report Type: Spontaneous
  Country: US (occurrence: US)
  Receive Date: 20210811
  Receipt Date: 20221117
  Transmission Date: 20230112
  Serious: Yes (Hospitalization)
  Sender: FDA-Public Use
  Company Number: US-SA-SAC20210809000393

PATIENT
  Age: 15 Year
  Sex: Male

DRUGS (1)
  1. DUPIXENT [Suspect]
     Active Substance: DUPILUMAB
     Indication: Dermatitis atopic
     Dosage: 300 MG, QOW
     Route: 058
     Dates: start: 201910

REACTIONS (4)
  - Eye infection [Not Recovered/Not Resolved]
  - Alcohol use disorder [Unknown]
  - Eye allergy [Unknown]
  - Eye inflammation [Unknown]
